FAERS Safety Report 4520463-0 (Version None)
Quarter: 2004Q4

REPORT INFORMATION
  Report Type: 
  Country: None (occurrence: None)
  Receive Date: 20041203
  Receipt Date: 20041118
  Transmission Date: 20050328
  Serious: Yes (Hospitalization)
  Sender: FDA-Public Use
  Company Number: OPD-2004-005

PATIENT
  Age: 14 Month
  Sex: Male
  Weight: 10 kg

DRUGS (5)
  1. ORAPRED [Suspect]
     Indication: RESPIRATORY DISTRESS
     Dosage: VARIABLE ML, TWICE, PO
     Route: 048
     Dates: start: 20040504, end: 20041102
  2. TRIAMCINOLONE [Concomitant]
  3. TACROLIMUS [Concomitant]
  4. HYDROXYZINE [Concomitant]
  5. ALBUTEROL [Concomitant]

REACTIONS (6)
  - DYSPNOEA EXACERBATED [None]
  - OXYGEN SATURATION DECREASED [None]
  - PNEUMONIA [None]
  - RASH PRURITIC [None]
  - RESPIRATORY RATE INCREASED [None]
  - URTICARIA [None]
